FAERS Safety Report 23288101 (Version 1)
Quarter: 2023Q4

REPORT INFORMATION
  Report Type: Spontaneous
  Country: CA (occurrence: CA)
  Receive Date: 20231212
  Receipt Date: 20231212
  Transmission Date: 20240109
  Serious: Yes (Death, Other)
  Sender: FDA-Public Use
  Company Number: CA-FreseniusKabi-FK202319865

PATIENT
  Age: 67 Year
  Sex: Male

DRUGS (1)
  1. PROPOFOL [Suspect]
     Active Substance: PROPOFOL
     Indication: Euthanasia
     Route: 042

REACTIONS (3)
  - Drug ineffective [Fatal]
  - Extra dose administered [Fatal]
  - Off label use [Fatal]
